FAERS Safety Report 8342033-9 (Version None)
Quarter: 2012Q2

REPORT INFORMATION
  Report Type: 
  Country: None (occurrence: None)
  Receive Date: 20120507
  Receipt Date: 20120502
  Transmission Date: 20120825
  Serious: Yes (Other)
  Sender: FDA-Public Use
  Company Number: US-PFIZER INC-2012108501

PATIENT
  Sex: Female
  Weight: 71.655 kg

DRUGS (5)
  1. PRISTIQ [Suspect]
     Dosage: UNK MG, SPLITTING INTO EIGHT PIECES EVERY OTHER DAY
     Route: 048
     Dates: start: 20120401
  2. ATIVAN [Concomitant]
     Indication: PAIN
     Dosage: TWO TABLETS
     Route: 048
  3. PRISTIQ [Suspect]
     Dosage: UNK MG, SPLITTING INTO FOUR PIECES
     Route: 048
     Dates: start: 20120101
  4. PRISTIQ [Suspect]
     Indication: PAIN
     Dosage: 50 MG, DAILY
     Route: 048
     Dates: start: 20110101
  5. PRISTIQ [Suspect]
     Dosage: UNK MG, SPLITTING INTO HALF FOR A WEEK DAILYUNK
     Route: 048
     Dates: start: 20120101

REACTIONS (5)
  - ANXIETY [None]
  - FEELING ABNORMAL [None]
  - DEPRESSION [None]
  - EMOTIONAL DISORDER [None]
  - DRUG WITHDRAWAL SYNDROME [None]
